FAERS Safety Report 14815461 (Version 3)
Quarter: 2018Q2

REPORT INFORMATION
  Report Type: Spontaneous
  Country: US (occurrence: US)
  Receive Date: 20180426
  Receipt Date: 20180605
  Transmission Date: 20180711
  Serious: Yes (Other)
  Sender: FDA-Public Use
  Company Number: US-PFIZER INC-2018167461

PATIENT
  Age: 35 Year
  Sex: Male
  Weight: 82 kg

DRUGS (4)
  1. DILANTIN [Interacting]
     Active Substance: PHENYTOIN
     Dosage: 400MG 4 DAYS, 500MG 3 DAYS
     Dates: start: 201804
  2. DILANTIN [Interacting]
     Active Substance: PHENYTOIN
     Dosage: UNK
  3. DILANTIN [Interacting]
     Active Substance: PHENYTOIN
     Dosage: 400 MG 4 DAYS/500 MG 3 DAYS
     Dates: start: 1986, end: 2013
  4. DILANTIN [Suspect]
     Active Substance: PHENYTOIN
     Indication: SEIZURE
     Dosage: 5 CAPSULES ON SUN, WED AND FRIDAY/4 CAPSULES THE OTHER DAYS
     Route: 048

REACTIONS (8)
  - Drug ineffective [Recovered/Resolved]
  - Nasopharyngitis [Recovered/Resolved]
  - Dehydration [Recovered/Resolved]
  - Drug interaction [Recovered/Resolved]
  - Drug dose omission [Recovered/Resolved]
  - Product quality issue [Unknown]
  - Drug ineffective [Recovered/Resolved]
  - Malaise [Recovered/Resolved]

NARRATIVE: CASE EVENT DATE: 20000620
